FAERS Safety Report 21316145 (Version 1)
Quarter: 2022Q3

REPORT INFORMATION
  Report Type: Spontaneous
  Country: FR (occurrence: FR)
  Receive Date: 20220910
  Receipt Date: 20220910
  Transmission Date: 20221027
  Serious: Yes (Life-Threatening)
  Sender: FDA-Public Use
  Company Number: None

PATIENT
  Age: 48 Year
  Sex: Male

DRUGS (9)
  1. TRAMADOL HYDROCHLORIDE [Suspect]
     Active Substance: TRAMADOL HYDROCHLORIDE
     Indication: Pain
     Dosage: 100 MILLIGRAM, ONCE
     Route: 042
     Dates: start: 20220114, end: 20220114
  2. XYLOCAINE WITH EPINEPHRINE [Suspect]
     Active Substance: EPINEPHRINE BITARTRATE\LIDOCAINE HYDROCHLORIDE
     Indication: Local anaesthesia
     Dosage: UNK
     Route: 065
     Dates: start: 20220114, end: 20220114
  3. PROPOFOL [Suspect]
     Active Substance: PROPOFOL
     Indication: General anaesthesia
     Dosage: 400 MILLIGRAM, ONCE
     Route: 042
     Dates: start: 20220114, end: 20220114
  4. ACUPAN [Suspect]
     Active Substance: NEFOPAM HYDROCHLORIDE
     Indication: Pain
     Dosage: 20 MILLIGRAM, ONCE
     Route: 042
     Dates: start: 20220114, end: 20220114
  5. AUGMENTIN [Suspect]
     Active Substance: AMOXICILLIN\CLAVULANATE POTASSIUM
     Indication: Antibiotic prophylaxis
     Dosage: 2 GRAM, ONCE
     Route: 042
     Dates: start: 20220114, end: 20220114
  6. DEXAMETHASONE [Suspect]
     Active Substance: DEXAMETHASONE
     Indication: Analgesic intervention supportive therapy
     Dosage: 8 MILLIGRAM, ONCE
     Route: 042
     Dates: start: 20220114, end: 20220114
  7. SUFENTANIL [Suspect]
     Active Substance: SUFENTANIL
     Indication: General anaesthesia
     Dosage: 10 MICROGRAM, ONCE
     Route: 042
     Dates: start: 20220114, end: 20220114
  8. KETOPROFEN [Suspect]
     Active Substance: KETOPROFEN
     Indication: Pain
     Dosage: 100 MILLIGRAM, ONCE
     Route: 042
     Dates: start: 20220114, end: 20220114
  9. DROPERIDOL [Suspect]
     Active Substance: DROPERIDOL
     Indication: Pain
     Dosage: 1.25 MILLIGRAM, ONCE
     Route: 042
     Dates: start: 20220114, end: 20220114

REACTIONS (1)
  - Anaphylactoid reaction [Recovered/Resolved]

NARRATIVE: CASE EVENT DATE: 20220114
